FAERS Safety Report 15716831 (Version 1)
Quarter: 2018Q4

REPORT INFORMATION
  Report Type: Spontaneous
  Country: ES (occurrence: ES)
  Receive Date: 20181213
  Receipt Date: 20181213
  Transmission Date: 20190205
  Serious: Yes (Hospitalization, Other)
  Sender: FDA-Public Use
  Company Number: ES-AUROBINDO-AUR-APL-2018-059796

PATIENT
  Age: 51 Year
  Sex: Male

DRUGS (5)
  1. PANTOPRAZOLE [Suspect]
     Active Substance: PANTOPRAZOLE
     Indication: BILIARY COLIC
     Dosage: 40 MG, ENDOVENOUS ADMINISTRATION
  2. HYOSCINE BUTYLBROMIDE [Suspect]
     Active Substance: BUTYLSCOPOLAMINE
     Indication: ABDOMINAL PAIN
     Dosage: 20 MG, ENDOVENOUS ADMINISTRATION
  3. HYOSCINE BUTYLBROMIDE [Suspect]
     Active Substance: BUTYLSCOPOLAMINE
     Indication: BILIARY COLIC
  4. METOCLOPRAMIDE HYDROCHLORIDE. [Suspect]
     Active Substance: METOCLOPRAMIDE HYDROCHLORIDE
     Indication: BILIARY COLIC
     Dosage: 10 MG, ENDOVENOUS ADMINISTRATION
  5. METAMIZOLE [Suspect]
     Active Substance: METAMIZOLE
     Indication: BILIARY COLIC
     Dosage: 2 G, ENDOVENOUS ADMINISTRATION

REACTIONS (12)
  - Cardio-respiratory arrest [Recovered/Resolved]
  - Hypersensitivity [Recovered/Resolved]
  - Electrocardiogram ST segment [Recovered/Resolved]
  - Kounis syndrome [Recovered/Resolved]
  - Vomiting [Recovered/Resolved]
  - Troponin increased [Recovered/Resolved]
  - Loss of consciousness [Recovered/Resolved]
  - Malaise [Recovered/Resolved]
  - Abdominal pain upper [Recovered/Resolved]
  - Hyperhidrosis [Recovered/Resolved]
  - Rash [Recovered/Resolved]
  - Hypotension [Recovered/Resolved]
